FAERS Safety Report 4354454-X (Version None)
Quarter: 2004Q2

REPORT INFORMATION
  Report Type: 
  Country: None (occurrence: None)
  Receive Date: 20040503
  Receipt Date: 20040422
  Transmission Date: 20050107
  Serious: Yes (Life-Threatening)
  Sender: FDA-Public Use
  Company Number: 2004JP000310

PATIENT
  Age: 45 Year
  Sex: Female

DRUGS (5)
  1. PROGRAF [Suspect]
     Indication: RENAL TRANSPLANT
     Dosage: 3.00 MG, BID, ORAL
     Route: 048
     Dates: start: 20000621
  2. METHYLPREDNISOLONE [Concomitant]
  3. MIZORIBINE [Concomitant]
  4. BLOPRESS (CANDESARTAN CILEXETIL) [Concomitant]
  5. EPADEL (ETHYL ICOSAPENTATE) [Concomitant]

REACTIONS (3)
  - BRAIN STEM INFARCTION [None]
  - DISEASE RECURRENCE [None]
  - INTRACRANIAL ANEURYSM [None]
